FAERS Safety Report 16038785 (Version 3)
Quarter: 2019Q2

REPORT INFORMATION
  Report Type: Spontaneous
  Country: JP (occurrence: JP)
  Receive Date: 20190305
  Receipt Date: 20190514
  Transmission Date: 20190711
  Serious: Yes (Hospitalization, Other)
  Sender: FDA-Public Use
  Company Number: JP-009507513-1902JPN002965J

PATIENT
  Age: 80 Year
  Sex: Female

DRUGS (2)
  1. RESTAMIN [Suspect]
     Active Substance: DIPHENHYDRAMINE
     Dosage: UNK
     Route: 065
     Dates: start: 2019
  2. KEYTRUDA [Suspect]
     Active Substance: PEMBROLIZUMAB
     Indication: MALIGNANT MELANOMA
     Dosage: 200 MILLIGRAM, EVERY 3 WEEKS
     Route: 041
     Dates: start: 20190222

REACTIONS (8)
  - Headache [Recovering/Resolving]
  - Abdominal pain [Recovering/Resolving]
  - Blood pressure decreased [Recovered/Resolved]
  - Somnolence [Recovering/Resolving]
  - Somnolence [Unknown]
  - Cellulitis [Recovering/Resolving]
  - Pulmonary artery thrombosis [Unknown]
  - Pyrexia [Recovering/Resolving]

NARRATIVE: CASE EVENT DATE: 2019
